FAERS Safety Report 25913767 (Version 2)
Quarter: 2025Q4

REPORT INFORMATION
  Report Type: Spontaneous
  Country: US (occurrence: US)
  Receive Date: 20251013
  Receipt Date: 20251126
  Transmission Date: 20260117
  Serious: No
  Sender: SANOFI AVENTIS
  Company Number: US-SA-SAC20220812001381

PATIENT
  Age: 60 Year
  Sex: Female
  Weight: 68.027 kg

DRUGS (1)
  1. DUPIXENT [Suspect]
     Active Substance: DUPILUMAB
     Indication: Dermatitis atopic
     Dosage: 300 MG, QOW
     Route: 058
     Dates: start: 201906

REACTIONS (4)
  - Illness [Recovering/Resolving]
  - Surgery [Unknown]
  - Arthralgia [Unknown]
  - Off label use [Unknown]
